FAERS Safety Report 25088067 (Version 3)
Quarter: 2025Q4

REPORT INFORMATION
  Report Type: Report from Study
  Country: US (occurrence: US)
  Receive Date: 20250318
  Receipt Date: 20251218
  Transmission Date: 20260118
  Serious: Yes (Hospitalization, Other)
  Sender: ABBVIE
  Company Number: US-ABBVIE-6162826

PATIENT
  Age: 53 Year
  Sex: Male
  Weight: 88.904 kg

DRUGS (2)
  1. CREON [Suspect]
     Active Substance: PANCRELIPASE AMYLASE\PANCRELIPASE LIPASE\PANCRELIPASE PROTEASE
     Indication: Pancreatic failure
     Dosage: FORM STRENGTH: 36000 UNIT
     Route: 048
     Dates: start: 20240701
  2. CREON [Suspect]
     Active Substance: PANCRELIPASE AMYLASE\PANCRELIPASE LIPASE\PANCRELIPASE PROTEASE
     Indication: Pancreatic failure
     Dosage: LAST ADMIN DATE 2024
     Route: 048
     Dates: start: 20240603

REACTIONS (12)
  - Anaemia [Unknown]
  - Nausea [Unknown]
  - Weight decreased [Unknown]
  - Pancreatic disorder [Unknown]
  - Swelling [Unknown]
  - Migraine [Not Recovered/Not Resolved]
  - Vomiting [Unknown]
  - Decreased appetite [Not Recovered/Not Resolved]
  - Abdominal pain lower [Unknown]
  - Dyschezia [Unknown]
  - Blood creatinine abnormal [Unknown]
  - Tachycardia [Unknown]

NARRATIVE: CASE EVENT DATE: 20240601
